FAERS Safety Report 13440409 (Version 1)
Quarter: 2017Q2

REPORT INFORMATION
  Report Type: Spontaneous
  Country: US (occurrence: US)
  Receive Date: 20170413
  Receipt Date: 20170413
  Transmission Date: 20170830
  Serious: No
  Sender: FDA-Public Use
  Company Number: US-ASTELLAS-2016US039847

PATIENT
  Age: 7 Year
  Sex: Male

DRUGS (1)
  1. PROGRAF [Suspect]
     Active Substance: TACROLIMUS\TACROLIMUS ANHYDROUS
     Indication: RENAL TRANSPLANT
     Dosage: 3.75 MG, OTHER (HALF IN THE MORNING AND HALF IN THE EVENING)
     Route: 048

REACTIONS (3)
  - Incorrect product storage [Unknown]
  - Incorrect product formulation administered [Unknown]
  - Off label use [Unknown]
